FAERS Safety Report 15877598 (Version 3)
Quarter: 2021Q2

REPORT INFORMATION
  Report Type: Spontaneous
  Country: FR (occurrence: FR)
  Receive Date: 20190128
  Receipt Date: 20210611
  Transmission Date: 20210716
  Serious: Yes (Other)
  Sender: FDA-Public Use
  Company Number: FR-REGENERON PHARMACEUTICALS, INC.-2019-13378

PATIENT

DRUGS (5)
  1. EYLEA [Suspect]
     Active Substance: AFLIBERCEPT
     Dosage: UNK, ONCE; 25TH INJECTION OF EYLEA
     Route: 031
     Dates: start: 20210315, end: 20210315
  2. EYLEA [Suspect]
     Active Substance: AFLIBERCEPT
     Indication: DIABETIC RETINOPATHY
     Dosage: UNK, ONCE; 20TH INJECTION OF EYLEA
     Route: 031
     Dates: start: 20200514, end: 20200514
  3. EYLEA [Suspect]
     Active Substance: AFLIBERCEPT
     Indication: MACULAR OEDEMA
     Dosage: UNK
     Route: 031
     Dates: start: 2016
  4. SIMBRINZA [Concomitant]
     Active Substance: BRIMONIDINE TARTRATE\BRINZOLAMIDE
     Indication: EXFOLIATION SYNDROME
     Dosage: UNK
  5. SIMBRINZA [Concomitant]
     Active Substance: BRIMONIDINE TARTRATE\BRINZOLAMIDE
     Indication: HYPERTONIA

REACTIONS (9)
  - Intraocular lens implant [Unknown]
  - Amaurosis [Unknown]
  - Retinal artery occlusion [Unknown]
  - Intraocular lens implant [Unknown]
  - Retinal artery occlusion [Unknown]
  - Amaurosis [Unknown]
  - Headache [Unknown]
  - Eye movement disorder [Unknown]
  - Blindness transient [Unknown]

NARRATIVE: CASE EVENT DATE: 201807
